FAERS Safety Report 7548276-6 (Version None)
Quarter: 2011Q2

REPORT INFORMATION
  Report Type: 
  Country: None (occurrence: None)
  Receive Date: 20110615
  Receipt Date: 20110610
  Transmission Date: 20111010
  Serious: No
  Sender: FDA-Public Use
  Company Number: US-PFIZER INC-2011128655

PATIENT
  Sex: Male

DRUGS (2)
  1. TIKOSYN [Suspect]
     Dosage: 250 UG, 2X/DAY
  2. CYCLOSPORINE [Suspect]
     Dosage: UNK

REACTIONS (1)
  - HYPOKALAEMIA [None]
